FAERS Safety Report 8434699-X (Version None)
Quarter: 2012Q2

REPORT INFORMATION
  Report Type: 
  Country: None (occurrence: None)
  Receive Date: 20120614
  Receipt Date: 20120611
  Transmission Date: 20120825
  Serious: Yes (Death)
  Sender: FDA-Public Use
  Company Number: BE-AMGEN-BELSP2012036250

PATIENT

DRUGS (7)
  1. PREDNISONE TAB [Concomitant]
     Indication: LYMPHOMA
     Dosage: UNK
  2. NEULASTA [Suspect]
     Indication: CHEMOTHERAPY
  3. CYCLOPHOSPHAMIDE [Concomitant]
     Indication: LYMPHOMA
     Dosage: UNK
  4. NEULASTA [Suspect]
     Indication: PROPHYLAXIS
     Dosage: UNK
  5. ONCOVIN [Concomitant]
     Indication: LYMPHOMA
     Dosage: UNK
  6. DOXORUBICIN HCL [Concomitant]
     Indication: LYMPHOMA
     Dosage: UNK
  7. RITUXIMAB [Concomitant]
     Indication: LYMPHOMA
     Dosage: UNK

REACTIONS (1)
  - SEPSIS [None]
